FAERS Safety Report 16826179 (Version 1)
Quarter: 2019Q3

REPORT INFORMATION
  Report Type: Spontaneous
  Country: US (occurrence: US)
  Receive Date: 20190919
  Receipt Date: 20190919
  Transmission Date: 20191005
  Serious: Yes (Hospitalization)
  Sender: FDA-Public Use
  Company Number: US-IBSA PHARMA-TIR-2019-0735

PATIENT
  Age: 57 Year
  Sex: Female

DRUGS (2)
  1. TIROSINT [Suspect]
     Active Substance: LEVOTHYROXINE SODIUM
     Dosage: 112MCG DAILY
     Route: 048
  2. TIROSINT [Suspect]
     Active Substance: LEVOTHYROXINE SODIUM
     Indication: THYROIDECTOMY
     Dosage: 112MCG DAILY
     Route: 048
     Dates: start: 2015

REACTIONS (8)
  - Wrong technique in product usage process [Unknown]
  - Discomfort [Unknown]
  - Malabsorption [Unknown]
  - Diarrhoea [Unknown]
  - Pain [Unknown]
  - Diverticulum [Unknown]
  - Small intestinal resection [Unknown]
  - Product physical issue [Unknown]

NARRATIVE: CASE EVENT DATE: 201908
